FAERS Safety Report 7393972-7 (Version None)
Quarter: 2011Q2

REPORT INFORMATION
  Report Type: 
  Country: None (occurrence: None)
  Receive Date: 20110405
  Receipt Date: 20110324
  Transmission Date: 20111010
  Serious: Yes (Hospitalization)
  Sender: FDA-Public Use
  Company Number: JP-SANOFI-AVENTIS-2011SA008002

PATIENT
  Age: 51 Year
  Sex: Female
  Weight: 52 kg

DRUGS (24)
  1. TS-1 [Suspect]
     Indication: RECTAL CANCER
     Route: 048
     Dates: start: 20101115
  2. BEVACIZUMAB [Suspect]
     Indication: RECTAL CANCER
     Route: 042
     Dates: start: 20101115, end: 20101115
  3. BEVACIZUMAB [Suspect]
     Route: 042
     Dates: start: 20110105, end: 20110105
  4. PARIET [Concomitant]
     Indication: ULCER
     Route: 048
     Dates: start: 20101004, end: 20110112
  5. CYTOTEC [Concomitant]
     Indication: ULCER
     Route: 048
     Dates: start: 20101101, end: 20110112
  6. OXYCONTIN [Concomitant]
     Indication: CANCER PAIN
     Route: 048
     Dates: start: 20101213, end: 20110112
  7. MAGNESIUM OXIDE [Concomitant]
     Indication: CONSTIPATION
     Route: 048
     Dates: start: 20100621, end: 20110112
  8. MORPHINE HYDROCHLORIDE [Concomitant]
     Indication: CANCER PAIN
     Route: 048
     Dates: start: 20101213, end: 20110112
  9. ELPLAT [Suspect]
     Route: 042
     Dates: start: 20101213, end: 20101213
  10. TS-1 [Suspect]
     Route: 048
     Dates: start: 20101213, end: 20101227
  11. DAIKENTYUTO [Concomitant]
     Indication: ABDOMINAL DISTENSION
     Route: 048
     Dates: start: 20100621, end: 20110112
  12. LOPEMIN [Concomitant]
     Route: 048
     Dates: start: 20110105, end: 20110112
  13. LOXOPROFEN SODIUM [Concomitant]
     Indication: ABDOMINAL PAIN
     Route: 048
     Dates: start: 20101018, end: 20110112
  14. KERATINAMIN [Concomitant]
     Indication: DRY SKIN
     Dates: start: 20110105, end: 20110112
  15. ADSORBIN [Concomitant]
     Route: 048
     Dates: start: 20110105, end: 20110112
  16. BIFIDOBACTERIUM BIFIDUM/ENTEROCOCCUS FAECIUM [Concomitant]
     Route: 048
     Dates: start: 20110105, end: 20110112
  17. DEXAMETHASONE [Concomitant]
     Indication: NAUSEA
     Route: 048
     Dates: start: 20110105, end: 20110112
  18. ELPLAT [Suspect]
     Indication: RECTAL CANCER
     Route: 042
     Dates: start: 20101115, end: 20101115
  19. TS-1 [Suspect]
     Route: 048
     Dates: start: 20110105, end: 20110112
  20. PENTASA [Concomitant]
     Indication: COLITIS ULCERATIVE
     Route: 048
     Dates: start: 20090119, end: 20110112
  21. TANNALBIN [Concomitant]
     Route: 048
     Dates: start: 20110105, end: 20110112
  22. PIRETAZOL [Concomitant]
     Route: 042
     Dates: start: 20110112
  23. ELPLAT [Suspect]
     Route: 042
     Dates: start: 20110105, end: 20110105
  24. CALCIUM CHLORIDE DIHYDRATE AND GLUCOSE AND SODIUM ACETATE AND POTASSIU [Concomitant]
     Route: 042
     Dates: start: 20110112

REACTIONS (2)
  - ILEUS [None]
  - COLITIS ULCERATIVE [None]
